FAERS Safety Report 4641121-8 (Version None)
Quarter: 2005Q2

REPORT INFORMATION
  Report Type: 
  Country: None (occurrence: None)
  Receive Date: 20050421
  Receipt Date: 20050413
  Transmission Date: 20051028
  Serious: Yes (Hospitalization, Other)
  Sender: FDA-Public Use
  Company Number: 200513286GDDC

PATIENT
  Age: 75 Year
  Sex: Female
  Weight: 64 kg

DRUGS (4)
  1. DOCETAXEL [Suspect]
     Indication: BREAST CANCER
     Route: 042
     Dates: start: 20041111, end: 20041223
  2. HERCEPTIN [Suspect]
     Indication: BREAST CANCER
     Dosage: DOSE: 6 MG/KG
     Route: 042
     Dates: start: 20041111, end: 20041202
  3. SIMVASTATIN [Concomitant]
  4. AMLODIPINE [Concomitant]

REACTIONS (4)
  - HYPOALBUMINAEMIA [None]
  - NEPHROTIC SYNDROME [None]
  - OEDEMA PERIPHERAL [None]
  - PROTEINURIA [None]
